FAERS Safety Report 4630223-8 (Version None)
Quarter: 2005Q2

REPORT INFORMATION
  Report Type: 
  Country: None (occurrence: None)
  Receive Date: 20050406
  Receipt Date: 20050324
  Transmission Date: 20051028
  Serious: Yes (Disabling)
  Sender: FDA-Public Use
  Company Number: DSA_26187_2005

PATIENT
  Age: 28 Year
  Sex: Male

DRUGS (3)
  1. TAVOR [Suspect]
     Dosage: 2.5 MG Q DAY PO
     Route: 048
     Dates: start: 20050211, end: 20050309
  2. METADON [Suspect]
     Dosage: 0.1 G Q DAY PO
     Route: 048
     Dates: start: 19950101, end: 20050309
  3. NOZINAN /NET/ [Suspect]
     Dosage: 200 MG Q DAY PO
     Route: 048
     Dates: start: 20050211, end: 20050309

REACTIONS (1)
  - HYPERAESTHESIA [None]
